FAERS Safety Report 21194830 (Version 1)
Quarter: 2022Q3

REPORT INFORMATION
  Report Type: Spontaneous
  Country: US (occurrence: None)
  Receive Date: 20220809
  Receipt Date: 20220809
  Transmission Date: 20221027
  Serious: Yes (Hospitalization)
  Sender: FDA-Public Use
  Company Number: None

PATIENT
  Sex: Female

DRUGS (2)
  1. OPSUMIT [Suspect]
     Active Substance: MACITENTAN
     Indication: Pulmonary arterial hypertension
     Dosage: 10MG DAILY ORAL?
     Route: 048
     Dates: start: 20200311
  2. VELETRI [Suspect]
     Active Substance: EPOPROSTENOL

REACTIONS (3)
  - Device computer issue [None]
  - Wrong technique in device usage process [None]
  - Hypervolaemia [None]
